FAERS Safety Report 10789983 (Version 1)
Quarter: 2015Q1

REPORT INFORMATION
  Report Type: Spontaneous
  Country: PH (occurrence: PH)
  Receive Date: 20150212
  Receipt Date: 20150212
  Transmission Date: 20150721
  Serious: Yes (Life-Threatening, Hospitalization, Other)
  Sender: FDA-Public Use
  Company Number: PHHY2014PH091330

PATIENT
  Age: 29 Year
  Sex: Female

DRUGS (5)
  1. TASIGNA [Suspect]
     Active Substance: NILOTINIB
     Dosage: 450 MG, PER DAY
     Route: 065
  2. TASIGNA [Suspect]
     Active Substance: NILOTINIB
     Indication: CHRONIC MYELOID LEUKAEMIA
     Dosage: 600 MG, QD
     Route: 048
     Dates: start: 20131213, end: 201404
  3. TASIGNA [Suspect]
     Active Substance: NILOTINIB
     Dosage: UNK UNK, QOD (EVERY OTHER DAY)
     Route: 065
     Dates: start: 201407
  4. TASIGNA [Suspect]
     Active Substance: NILOTINIB
     Dosage: 250 MG, UNK
     Route: 065
  5. TASIGNA [Suspect]
     Active Substance: NILOTINIB
     Dosage: 150 MG, QD
     Route: 065
     Dates: start: 201405

REACTIONS (10)
  - Menstruation irregular [Recovered/Resolved]
  - Haematochezia [Unknown]
  - Leukopenia [Unknown]
  - Dysfunctional uterine bleeding [Recovered/Resolved]
  - Thrombocytopenia [Not Recovered/Not Resolved]
  - Menorrhagia [Recovered/Resolved]
  - Headache [Recovered/Resolved]
  - Neutropenia [Unknown]
  - Anaemia [Recovered/Resolved]
  - Haemorrhage [Unknown]

NARRATIVE: CASE EVENT DATE: 201404
